FAERS Safety Report 19804543 (Version 3)
Quarter: 2021Q4

REPORT INFORMATION
  Report Type: Spontaneous
  Country: CA (occurrence: CA)
  Receive Date: 20210908
  Receipt Date: 20211117
  Transmission Date: 20220303
  Serious: Yes (Other)
  Sender: FDA-Public Use
  Company Number: CA-PFIZER INC-202101116321

PATIENT
  Age: 85 Year
  Sex: Male
  Weight: 81.19 kg

DRUGS (11)
  1. VYNDAQEL [Suspect]
     Active Substance: TAFAMIDIS MEGLUMINE
     Indication: Cardiac amyloidosis
     Dosage: UNK
     Dates: start: 202003
  2. VYNDAQEL [Suspect]
     Active Substance: TAFAMIDIS MEGLUMINE
     Dosage: 80 MG, 1X/DAY
     Route: 048
     Dates: start: 20210316
  3. ZYLOPRIM [Concomitant]
     Active Substance: ALLOPURINOL
     Dosage: 1DF (100 MG TOTAL), 1X/DAY
     Route: 048
     Dates: start: 20210621
  4. PERINDOPRIL ERBUMINE [Concomitant]
     Active Substance: PERINDOPRIL ERBUMINE
     Dosage: 0.5 DF (2 MG TOTAL), 1X/DAY
     Route: 048
  5. ALDACTONE [Concomitant]
     Active Substance: SPIRONOLACTONE
     Dosage: 12.5 MG, 1X/DAY
     Route: 048
  6. ELIQUIS [Concomitant]
     Active Substance: APIXABAN
     Dosage: 5 MG, 2X/DAY
     Route: 048
  7. BISOPROLOL FUMARATE [Concomitant]
     Active Substance: BISOPROLOL FUMARATE
     Dosage: 7.5 MG, 1X/DAY
     Route: 048
  8. CHOLECALCIFEROL [Concomitant]
     Active Substance: CHOLECALCIFEROL
     Dosage: 1000 UNIT (25 MCG), 1X/DAY
     Route: 048
  9. COLLAGEN RX HYDROLYSATE [Concomitant]
     Dosage: 5 ML, 1X/DAY
     Route: 048
  10. LASIX [Concomitant]
     Active Substance: FUROSEMIDE
     Dosage: 2 DF (80 MG TOTAL), 1X/DAY, IN THE MORNING
     Route: 048
  11. MINERALS\VITAMINS [Concomitant]
     Active Substance: MINERALS\VITAMINS
     Dosage: 1 DF, 1X/DAY
     Route: 048

REACTIONS (15)
  - Diastolic dysfunction [Unknown]
  - Orthostatic hypotension [Unknown]
  - Dizziness [Unknown]
  - Dyspnoea exertional [Unknown]
  - Gout [Unknown]
  - Abdominal discomfort [Recovered/Resolved]
  - Fall [Unknown]
  - Cartilage injury [Unknown]
  - Muscle injury [Unknown]
  - Contusion [Unknown]
  - Arthralgia [Unknown]
  - Pain in extremity [Unknown]
  - Blood creatinine increased [Unknown]
  - Blood uric acid increased [Unknown]
  - Glomerular filtration rate decreased [Unknown]

NARRATIVE: CASE EVENT DATE: 20210101
